FAERS Safety Report 5751313-2 (Version None)
Quarter: 2008Q2

REPORT INFORMATION
  Report Type: 
  Country: None (occurrence: None)
  Receive Date: 20080528
  Receipt Date: 20080516
  Transmission Date: 20081010
  Serious: Yes (Other)
  Sender: FDA-Public Use
  Company Number: US-PFIZER INC-2008028751

PATIENT
  Sex: Female
  Weight: 121.4 kg

DRUGS (16)
  1. CHANTIX [Suspect]
     Indication: SMOKING CESSATION THERAPY
  2. AVAPRO [Concomitant]
  3. TOPROL-XL [Concomitant]
  4. ACETYLSALICYLIC ACID SRT [Concomitant]
  5. GLIPIZIDE [Concomitant]
  6. LEVOTHYROXINE SODIUM [Concomitant]
  7. NEXIUM [Concomitant]
  8. FUROSEMIDE [Concomitant]
  9. HYDROCODONE BITARTRATE [Concomitant]
  10. NITROGLYCERIN [Concomitant]
  11. LORAZEPAM [Concomitant]
  12. IPRATROPIUM BROMIDE [Concomitant]
  13. PULMICORT [Concomitant]
  14. XOPENEX [Concomitant]
  15. SYNTHROID [Concomitant]
  16. ZOCOR [Concomitant]

REACTIONS (2)
  - DYSPNOEA [None]
  - EXTRASYSTOLES [None]
